FAERS Safety Report 6312965-1 (Version None)
Quarter: 2009Q3

REPORT INFORMATION
  Report Type: 
  Country: None (occurrence: None)
  Receive Date: 20090814
  Receipt Date: 20090814
  Transmission Date: 20100115
  Serious: Yes (Other)
  Sender: FDA-Public Use
  Company Number: None

PATIENT
  Age: 54 Year
  Sex: Female
  Weight: 68.9467 kg

DRUGS (1)
  1. VAGIFEM [Suspect]
     Indication: VULVOVAGINAL DRYNESS
     Dosage: 1 TABLET  2X/WEEK VAG
     Route: 067
     Dates: start: 20090716, end: 20090813

REACTIONS (2)
  - DRY EYE [None]
  - VISION BLURRED [None]
